FAERS Safety Report 21322713 (Version 1)
Quarter: 2022Q3

REPORT INFORMATION
  Report Type: Spontaneous
  Country: US (occurrence: US)
  Receive Date: 20220912
  Receipt Date: 20220912
  Transmission Date: 20221026
  Serious: Yes (Other)
  Sender: FDA-Public Use
  Company Number: US-COOPERSURGICAL, INC.-US-2022CPS003093

PATIENT
  Sex: Female

DRUGS (1)
  1. PARAGARD T 380A [Suspect]
     Active Substance: COPPER
     Indication: Product used for unknown indication
     Dosage: UNK
     Route: 015
     Dates: start: 20170717

REACTIONS (14)
  - Injury associated with device [Not Recovered/Not Resolved]
  - Inflammation [Unknown]
  - Device breakage [Not Recovered/Not Resolved]
  - Complication of device removal [Not Recovered/Not Resolved]
  - Foreign body in reproductive tract [Not Recovered/Not Resolved]
  - Scar [Unknown]
  - Pollakiuria [Unknown]
  - Insomnia [Unknown]
  - Anxiety [Unknown]
  - Pelvic pain [Unknown]
  - Pain [Unknown]
  - Muscle spasms [Unknown]
  - Device dislocation [Unknown]
  - Discomfort [Unknown]

NARRATIVE: CASE EVENT DATE: 20210722
